FAERS Safety Report 9413140 (Version 5)
Quarter: 2015Q1

REPORT INFORMATION
  Report Type: Report from Study
  Country: US (occurrence: US)
  Receive Date: 20130722
  Receipt Date: 20150203
  Transmission Date: 20150721
  Serious: Yes (Hospitalization, Other)
  Sender: FDA-Public Use
  Company Number: US-TEVA-419977USA

PATIENT
  Age: 65 Year
  Sex: Female
  Weight: 42.3 kg

DRUGS (28)
  1. DOXORUBICIN NOS [Suspect]
     Active Substance: DOXORUBICIN
     Indication: SARCOMA
     Route: 065
     Dates: start: 20121212
  2. LIPITOR [Concomitant]
     Active Substance: ATORVASTATIN CALCIUM
     Dates: start: 20120222
  3. ALBUTEROL. [Concomitant]
     Active Substance: ALBUTEROL
     Dates: start: 2006
  4. BENZOYL PEROXIDE W/CLINDAMYCIN [Concomitant]
     Dates: start: 1990
  5. SALINE [Concomitant]
     Active Substance: SODIUM CHLORIDE
     Dates: start: 2011
  6. PLAVIX [Concomitant]
     Active Substance: CLOPIDOGREL BISULFATE
     Dates: start: 20120222
  7. METOPROLOL [Concomitant]
     Active Substance: METOPROLOL
     Dates: start: 20120222
  8. VICODIN [Concomitant]
     Active Substance: ACETAMINOPHEN\HYDROCODONE BITARTRATE
     Dates: start: 20121212
  9. EMEND [Concomitant]
     Active Substance: APREPITANT
     Dates: start: 20121212
  10. DOXORUBICIN NOS [Suspect]
     Active Substance: DOXORUBICIN
     Dosage: 75MG/M2/111 MG/BOLUS/CYCLE #6
     Dates: start: 20130403, end: 20130403
  11. ACETAMINOPHEN. [Concomitant]
     Active Substance: ACETAMINOPHEN
     Dates: start: 20121212
  12. VASELINE PURE [Concomitant]
     Active Substance: PETROLATUM
     Dates: start: 20130225
  13. MIRALAX [Concomitant]
     Active Substance: POLYETHYLENE GLYCOL 3350
  14. ASPIRIN. [Concomitant]
     Active Substance: ASPIRIN
     Dates: start: 20120222
  15. LISINOPRIL. [Concomitant]
     Active Substance: LISINOPRIL
     Dates: start: 20120222, end: 20130327
  16. PANTOPRAZOLE [Concomitant]
     Active Substance: PANTOPRAZOLE SODIUM
     Dates: start: 20120222
  17. PROCHLORPERAZINE. [Concomitant]
     Active Substance: PROCHLORPERAZINE
     Dates: start: 20121213
  18. COLACE [Concomitant]
     Active Substance: DOCUSATE SODIUM
     Dates: start: 20121217
  19. DOXORUBICIN NOS [Suspect]
     Active Substance: DOXORUBICIN
  20. TRETINOIN. [Concomitant]
     Active Substance: TRETINOIN
     Dates: start: 1990, end: 201301
  21. NASONEX [Concomitant]
     Active Substance: MOMETASONE FUROATE
     Dates: start: 2007, end: 201212
  22. ONDANSETRON [Concomitant]
     Active Substance: ONDANSETRON
     Dates: start: 20121212
  23. LORAZEPAM. [Concomitant]
     Active Substance: LORAZEPAM
     Dates: start: 20121213
  24. IMODIUM [Concomitant]
     Active Substance: LOPERAMIDE HYDROCHLORIDE
     Dates: start: 201301
  25. INVESTIGATIONAL DRUG [Suspect]
     Active Substance: INVESTIGATIONAL PRODUCT
     Dosage: 225 MG/M2/333MG/CYCLE 6 DAY 8
  26. DIPHENHYDRAMINE [Concomitant]
     Active Substance: DIPHENHYDRAMINE
     Dates: start: 20121212
  27. ROBITUSSIN (GUAIFENESIN) [Concomitant]
     Active Substance: GUAIFENESIN
     Dates: start: 201301
  28. UREA-CRESOL-SULFONATE SODIUM [Concomitant]
     Dates: start: 20130201

REACTIONS (1)
  - Cellulitis [Not Recovered/Not Resolved]

NARRATIVE: CASE EVENT DATE: 20130419
